FAERS Safety Report 5898288-3 (Version None)
Quarter: 2008Q3

REPORT INFORMATION
  Report Type: 
  Country: None (occurrence: None)
  Receive Date: 20080925
  Receipt Date: 20070821
  Transmission Date: 20090109
  Serious: No
  Sender: FDA-Public Use
  Company Number: A0673483A

PATIENT
  Sex: Female

DRUGS (1)
  1. WELLBUTRIN XL [Suspect]
     Indication: DEPRESSION
     Dosage: 150MG PER DAY
     Route: 048

REACTIONS (1)
  - BEDRIDDEN [None]
